FAERS Safety Report 13910756 (Version 1)
Quarter: 2017Q3

REPORT INFORMATION
  Report Type: Spontaneous
  Country: US (occurrence: None)
  Receive Date: 20170825
  Receipt Date: 20170825
  Transmission Date: 20171127
  Serious: Yes (Hospitalization)
  Sender: FDA-Public Use
  Company Number: None

PATIENT
  Age: 56 Year
  Sex: Male

DRUGS (18)
  1. SIMPONI [Suspect]
     Active Substance: GOLIMUMAB
     Indication: COLITIS ULCERATIVE
     Route: 058
     Dates: start: 20170508
  2. OMEPRAZOLE. [Concomitant]
     Active Substance: OMEPRAZOLE
  3. AMLODIPINE [Concomitant]
     Active Substance: AMLODIPINE BESYLATE
  4. HYOSCYAMINE. [Concomitant]
     Active Substance: HYOSCYAMINE
  5. PROAIR HFA AER [Concomitant]
  6. CANASA [Concomitant]
     Active Substance: MESALAMINE
  7. LAMOTRIGINE. [Concomitant]
     Active Substance: LAMOTRIGINE
  8. LISINOPRIL. [Concomitant]
     Active Substance: LISINOPRIL
  9. MESALAMINE. [Concomitant]
     Active Substance: MESALAMINE
  10. PROCTOZONE [Concomitant]
     Active Substance: HYDROCORTISONE
  11. DESVENLAFAX [Concomitant]
  12. CLONAZEPAM. [Concomitant]
     Active Substance: CLONAZEPAM
  13. DULOXETINE CAP [Concomitant]
  14. DICYCLOMINE [Concomitant]
     Active Substance: DICYCLOMINE HYDROCHLORIDE
  15. TESTOST CYP INJ [Concomitant]
  16. METOPROL TAR [Concomitant]
  17. PREDNISONE. [Concomitant]
     Active Substance: PREDNISONE
  18. BUT/APAP/CAP [Concomitant]

REACTIONS (6)
  - Diarrhoea [None]
  - Pain [None]
  - Dehydration [None]
  - Muscle spasms [None]
  - Insomnia [None]
  - Condition aggravated [None]

NARRATIVE: CASE EVENT DATE: 201708
